FAERS Safety Report 4746193-8 (Version None)
Quarter: 2005Q3

REPORT INFORMATION
  Report Type: 
  Country: None (occurrence: None)
  Receive Date: 20050816
  Receipt Date: 20050309
  Transmission Date: 20060218
  Serious: Yes (Hospitalization)
  Sender: FDA-Public Use
  Company Number: US-MERCK-0503USA01939

PATIENT
  Age: 80 Year
  Sex: Male
  Weight: 82 kg

DRUGS (12)
  1. VIOXX [Suspect]
     Indication: ARTHRITIS
     Route: 048
     Dates: start: 20020122, end: 20040701
  2. VIOXX [Suspect]
     Indication: MUSCULOSKELETAL PAIN
     Route: 048
     Dates: start: 20020122, end: 20040701
  3. ZYRTEC [Concomitant]
     Indication: PRURITUS
     Route: 048
  4. ZYRTEC [Concomitant]
     Indication: SLEEP DISORDER
     Route: 048
  5. ACETAMINOPHEN AND CODEINE [Concomitant]
     Route: 065
  6. AMOXICILLIN [Concomitant]
     Route: 065
  7. CLINDAMYCIN [Concomitant]
     Route: 065
  8. ACETAMINOPHEN AND HYDROCODONE BITARTRATE [Concomitant]
     Route: 065
  9. LYCOPENE [Concomitant]
     Route: 048
  10. MULTIVITAMIN [Concomitant]
     Route: 048
  11. VITAMIN E [Concomitant]
     Route: 048
  12. OMEGA-3 MARINE TRIGLYCERIDES [Concomitant]
     Route: 048

REACTIONS (15)
  - BALANCE DISORDER [None]
  - CEREBRAL ARTERY EMBOLISM [None]
  - COLONIC POLYP [None]
  - CONSTIPATION [None]
  - COORDINATION ABNORMAL [None]
  - FATIGUE [None]
  - HEMIPARESIS [None]
  - MITRAL VALVE INCOMPETENCE [None]
  - MONOPLEGIA [None]
  - POLYP [None]
  - PROSTATIC SPECIFIC ANTIGEN INCREASED [None]
  - PRURITUS [None]
  - PULMONARY VALVE INCOMPETENCE [None]
  - SLEEP DISORDER [None]
  - TRICUSPID VALVE INCOMPETENCE [None]
